FAERS Safety Report 14807414 (Version 2)
Quarter: 2018Q2

REPORT INFORMATION
  Report Type: Spontaneous
  Country: CN (occurrence: CN)
  Receive Date: 20180425
  Receipt Date: 20180511
  Transmission Date: 20180711
  Serious: Yes (Death, Other)
  Sender: FDA-Public Use
  Company Number: CN-ASTRAZENECA-2018SE51423

PATIENT
  Age: 63 Year
  Sex: Female

DRUGS (3)
  1. C-MET INHIBITOR [Concomitant]
     Indication: LUNG ADENOCARCINOMA STAGE IV
  2. GEFITINIB. [Suspect]
     Active Substance: GEFITINIB
     Indication: LUNG ADENOCARCINOMA STAGE IV
     Dosage: RESTARTED DOSE AFTER DISEASE PROGRESSION ON CRIZOTINIB
     Route: 048
  3. GEFITINIB. [Suspect]
     Active Substance: GEFITINIB
     Indication: LUNG ADENOCARCINOMA STAGE IV
     Route: 048

REACTIONS (2)
  - Drug resistance [Unknown]
  - Malignant neoplasm progression [Fatal]
